FAERS Safety Report 9036426 (Version 1)
Quarter: 2013Q1

REPORT INFORMATION
  Report Type: Spontaneous
  Country: US (occurrence: None)
  Receive Date: 20130117
  Receipt Date: 20130117
  Transmission Date: 20140127
  Serious: Yes (Hospitalization, Disabling, Other)
  Sender: FDA-Public Use
  Company Number: None

PATIENT
  Age: 51 Year
  Sex: Female
  Weight: 72.7 kg

DRUGS (2)
  1. COPAXONE [Suspect]
     Indication: MULTIPLE SCLEROSIS
     Dosage: 20MG/1ML (1) 1 X DAILY 057
     Dates: start: 20130109
  2. COPAXONE [Suspect]
     Dosage: 20MG/1ML (1) 1 X DAILY 057
     Dates: start: 20130105

REACTIONS (9)
  - Injection site erythema [None]
  - Injection site swelling [None]
  - Product quality issue [None]
  - Product contamination [None]
  - Poor quality drug administered [None]
  - Stress [None]
  - Inappropriate schedule of drug administration [None]
  - Anxiety [None]
  - Multiple sclerosis [None]
